FAERS Safety Report 15141952 (Version 1)
Quarter: 2018Q3

REPORT INFORMATION
  Report Type: Spontaneous
  Country: RO (occurrence: RO)
  Receive Date: 20180713
  Receipt Date: 20180713
  Transmission Date: 20181010
  Serious: Yes (Life-Threatening)
  Sender: FDA-Public Use
  Company Number: RO-B.I. PHARMACEUTICALS,INC./RIDGEFIELD-2018-12-002387

PATIENT
  Age: 65 Year
  Sex: Female

DRUGS (1)
  1. SPIOLTO [Suspect]
     Active Substance: OLODATEROL HYDROCHLORIDE\TIOTROPIUM BROMIDE MONOHYDRATE
     Indication: CHRONIC OBSTRUCTIVE PULMONARY DISEASE
     Dosage: STRENGTH: 2.5  ?G/ 2.5  ?G X 2/ DAY
     Route: 055
     Dates: start: 20180703, end: 20180706

REACTIONS (5)
  - Malaise [Recovered/Resolved]
  - Wheezing [Recovered/Resolved]
  - Tremor [Recovered/Resolved]
  - Palpitations [Recovered/Resolved]
  - Hyperhidrosis [Recovered/Resolved]

NARRATIVE: CASE EVENT DATE: 20180703
